FAERS Safety Report 14081165 (Version 1)
Quarter: 2017Q4

REPORT INFORMATION
  Report Type: Spontaneous
  Country: US (occurrence: US)
  Receive Date: 20171012
  Receipt Date: 20171012
  Transmission Date: 20180321
  Serious: No
  Sender: FDA-Public Use
  Company Number: None

PATIENT
  Age: 5 Year
  Sex: Female
  Weight: 18 kg

DRUGS (1)
  1. ACT KIDS ANTICAVITY FLUORIDE FRUIT PUNCH [Suspect]
     Active Substance: SODIUM FLUORIDE
     Indication: DENTAL DISORDER PROPHYLAXIS
     Dosage: QUANTITY:1 TUBE;?
     Route: 048
     Dates: start: 20171001

REACTIONS (4)
  - Retching [None]
  - Screaming [None]
  - Product formulation issue [None]
  - Vomiting [None]

NARRATIVE: CASE EVENT DATE: 20171001
